FAERS Safety Report 11674860 (Version 1)
Quarter: 2015Q4

REPORT INFORMATION
  Report Type: Spontaneous
  Country: US (occurrence: US)
  Receive Date: 20151027
  Receipt Date: 20151027
  Transmission Date: 20160304
  Serious: No
  Sender: FDA-Public Use
  Company Number: US-ELI_LILLY_AND_COMPANY-US201002002806

PATIENT
  Sex: Female

DRUGS (7)
  1. FORTEO [Suspect]
     Active Substance: TERIPARATIDE
     Dates: start: 20100205
  2. FORTEO [Suspect]
     Active Substance: TERIPARATIDE
     Dates: start: 20100527
  3. FORTEO [Suspect]
     Active Substance: TERIPARATIDE
     Dates: start: 20100624
  4. FORTEO [Suspect]
     Active Substance: TERIPARATIDE
     Dosage: UNK, UNK
     Dates: start: 20100108
  5. FORTEO [Suspect]
     Active Substance: TERIPARATIDE
     Dates: start: 20100305
  6. FORTEO [Suspect]
     Active Substance: TERIPARATIDE
     Dates: start: 20100402
  7. FORTEO [Suspect]
     Active Substance: TERIPARATIDE
     Dates: start: 20100430

REACTIONS (3)
  - Muscle spasms [Unknown]
  - Injection site pain [Unknown]
  - Injection site discolouration [Unknown]
